FAERS Safety Report 4562848-2 (Version None)
Quarter: 2005Q1

REPORT INFORMATION
  Report Type: 
  Country: None (occurrence: None)
  Receive Date: 20050121
  Receipt Date: 20050107
  Transmission Date: 20050727
  Serious: Yes (Other)
  Sender: FDA-Public Use
  Company Number: 2005007806

PATIENT
  Age: 22 Year
  Sex: Female

DRUGS (3)
  1. XALATAN [Suspect]
     Indication: GLAUCOMA
     Dosage: 1.5 MCG (1.5 MCG, QD), OPHTHALMIC
     Route: 047
  2. PROCATEROL HCL [Concomitant]
  3. BUDESONIDE (BUDESONIDE) [Concomitant]

REACTIONS (2)
  - PALPITATIONS [None]
  - TACHYCARDIA [None]
